FAERS Safety Report 13998081 (Version 3)
Quarter: 2017Q4

REPORT INFORMATION
  Report Type: Spontaneous
  Country: CA (occurrence: CA)
  Receive Date: 20170921
  Receipt Date: 20171205
  Transmission Date: 20180321
  Serious: Yes (Death, Other)
  Sender: FDA-Public Use
  Company Number: CA-CELGENEUS-CAN-20170905488

PATIENT
  Age: 55 Year
  Sex: Female

DRUGS (3)
  1. VIDAZA [Suspect]
     Active Substance: AZACITIDINE
     Indication: MYELOPROLIFERATIVE NEOPLASM
     Dosage: 75 MILLIGRAM/SQ. METER
     Route: 065
     Dates: start: 20170804, end: 20170811
  2. PREGABALIN. [Concomitant]
     Active Substance: PREGABALIN
     Indication: BACK PAIN
     Dosage: 200 MILLIGRAM
     Route: 065
     Dates: start: 20170710, end: 20170831
  3. VANCOMYCIN [Concomitant]
     Active Substance: VANCOMYCIN
     Indication: LUNG INFECTION
     Dosage: 3000 MILLIGRAM
     Route: 065
     Dates: start: 20170824, end: 20170831

REACTIONS (2)
  - Respiratory failure [Fatal]
  - Pneumonia [Unknown]

NARRATIVE: CASE EVENT DATE: 20170815
